FAERS Safety Report 16257970 (Version 1)
Quarter: 2019Q2

REPORT INFORMATION
  Report Type: Spontaneous
  Country: US (occurrence: US)
  Receive Date: 20190430
  Receipt Date: 20190430
  Transmission Date: 20190711
  Serious: No
  Sender: FDA-Public Use
  Company Number: US-TEVA-2019-US-1039926

PATIENT
  Age: 59 Year
  Sex: Male
  Weight: 84.44 kg

DRUGS (1)
  1. CARBIDOPA AND LEVODOPA 25MG/100MG ACTAVIS [Suspect]
     Active Substance: CARBIDOPA\LEVODOPA
     Indication: PARKINSON^S DISEASE
     Dosage: 1/2 TABLET EVERY 1/2 TO 1 HOURS TO TREAT THE SYMPTOMS OF PARKINSON^S DISEASE (A TOTAL OF ABOUT 10 TA
     Route: 048

REACTIONS (2)
  - Dystonia [Unknown]
  - Dyskinesia [Unknown]
